FAERS Safety Report 9587941 (Version 3)
Quarter: 2013Q4

REPORT INFORMATION
  Report Type: Spontaneous
  Country: CN (occurrence: CN)
  Receive Date: 20131003
  Receipt Date: 20131024
  Transmission Date: 20140711
  Serious: Yes (Hospitalization)
  Sender: FDA-Public Use
  Company Number: CN-GILEAD-2013-0082027

PATIENT
  Age: 59 Year
  Sex: Male

DRUGS (8)
  1. ADEFOVIR DIPIVOXIL [Suspect]
     Indication: CHRONIC HEPATITIS B
     Dosage: UNK
     Route: 065
     Dates: start: 20120227, end: 20120317
  2. LAMIVUDINE [Suspect]
     Indication: CHRONIC HEPATITIS B
     Dosage: UNK
     Route: 065
     Dates: start: 20120227, end: 20120317
  3. GLYCYRRHIZIC ACID [Concomitant]
     Dosage: UNK
  4. GLUTATHIONE [Concomitant]
     Dosage: UNK
  5. ARMILLARISIN A [Concomitant]
     Indication: CHRONIC HEPATITIS B
     Route: 042
     Dates: start: 201202
  6. AMILORIDE [Concomitant]
     Dosage: UNK
     Route: 048
  7. AMILORIDE [Concomitant]
     Route: 048
  8. ENTECAVIR [Concomitant]
     Indication: CHRONIC HEPATITIS B
     Dosage: UNK

REACTIONS (4)
  - Drug hypersensitivity [Unknown]
  - Rash [Recovered/Resolved]
  - Rash maculo-papular [Unknown]
  - Pruritus [Unknown]
